FAERS Safety Report 8432049-6 (Version None)
Quarter: 2012Q2

REPORT INFORMATION
  Report Type: 
  Country: None (occurrence: None)
  Receive Date: 20120613
  Receipt Date: 20120607
  Transmission Date: 20120825
  Serious: Yes (Hospitalization)
  Sender: FDA-Public Use
  Company Number: JP-JNJFOC-20120412955

PATIENT
  Sex: Female
  Weight: 67 kg

DRUGS (20)
  1. IMURAN [Concomitant]
     Route: 048
     Dates: start: 20120417, end: 20120419
  2. IMURAN [Concomitant]
     Dosage: 23 MG
     Route: 048
     Dates: start: 20111208, end: 20120416
  3. PREDNISOLONE [Concomitant]
     Route: 065
  4. REMICADE [Suspect]
     Dosage: 8TH DOSE
     Route: 042
     Dates: start: 20111110
  5. RABEPRAZOLE SODIUM [Concomitant]
     Indication: GASTRITIS
     Route: 048
  6. REMICADE [Suspect]
     Dosage: TENTH DOSE
     Route: 042
     Dates: start: 20120301
  7. REMICADE [Suspect]
     Dosage: 4TH DOSE
     Route: 042
     Dates: start: 20101019
  8. LOXONIN [Concomitant]
     Indication: COLITIS ULCERATIVE
     Dosage: 60 MG
     Route: 048
  9. REMICADE [Suspect]
     Dosage: FIRST DOSE
     Route: 042
     Dates: start: 20100712
  10. MUCOSTA [Concomitant]
     Indication: GASTRITIS
     Dosage: 100 MG
     Route: 048
  11. REMICADE [Suspect]
     Indication: COLITIS ULCERATIVE
     Dosage: NINTH DOSE
     Route: 042
     Dates: start: 20120105
  12. CEFAZOLIN SODIUM [Concomitant]
     Indication: COLITIS ULCERATIVE
     Dosage: 2 G
     Route: 048
  13. REMICADE [Suspect]
     Dosage: FIFTH DOSE
     Route: 042
     Dates: start: 20110803
  14. PROGRAF [Concomitant]
     Route: 065
     Dates: start: 20110101, end: 20110601
  15. IMURAN [Concomitant]
     Indication: COLITIS ULCERATIVE
     Route: 048
     Dates: start: 20120420, end: 20120422
  16. ASACOL [Concomitant]
     Indication: COLITIS ULCERATIVE
     Route: 048
  17. IMURAN [Concomitant]
     Route: 048
     Dates: start: 20120423
  18. MYONAL [Concomitant]
     Indication: MUSCLE TIGHTNESS
     Dosage: 150 MG
     Route: 048
  19. SALAZOPYRIN [Concomitant]
     Route: 065
  20. PENTASA [Concomitant]
     Route: 065

REACTIONS (3)
  - THERAPEUTIC RESPONSE DECREASED [None]
  - VASCULITIS [None]
  - SKIN ULCER [None]
